FAERS Safety Report 10551688 (Version 1)
Quarter: 2014Q4

REPORT INFORMATION
  Report Type: Spontaneous
  Country: US (occurrence: US)
  Receive Date: 20141029
  Receipt Date: 20141029
  Transmission Date: 20150529
  Serious: No
  Sender: FDA-Public Use
  Company Number: US-PFIZER INC-2014294195

PATIENT
  Age: 47 Year
  Sex: Female

DRUGS (3)
  1. BIO 35 MULTIVITAMIN [Concomitant]
     Dosage: UNK, TAKES OCCASIONALLY
  2. DUAVEE [Suspect]
     Active Substance: BAZEDOXIFENE ACETATE\ESTROGENS, CONJUGATED
     Indication: OSTEOPOROSIS
  3. DUAVEE [Suspect]
     Active Substance: BAZEDOXIFENE ACETATE\ESTROGENS, CONJUGATED
     Indication: MENOPAUSE
     Dosage: 20 MG, 1X/DAY (BY MOUTH)
     Route: 048

REACTIONS (2)
  - Hypoaesthesia [Unknown]
  - Orgasm abnormal [Unknown]
